FAERS Safety Report 19927723 (Version 1)
Quarter: 2021Q4

REPORT INFORMATION
  Report Type: Spontaneous
  Country: US (occurrence: US)
  Receive Date: 20211006
  Receipt Date: 20211006
  Transmission Date: 20220303
  Serious: No
  Sender: FDA-Public Use
  Company Number: None

PATIENT

DRUGS (2)
  1. BEVACIZUMAB [Suspect]
     Active Substance: BEVACIZUMAB
  2. CETUXIMAB [Suspect]
     Active Substance: CETUXIMAB

REACTIONS (3)
  - Intercepted product prescribing error [None]
  - Dose calculation error [None]
  - Wrong dose [None]
